FAERS Safety Report 9504208 (Version 1)
Quarter: 2013Q3

REPORT INFORMATION
  Report Type: Spontaneous
  Country: US (occurrence: None)
  Receive Date: 20130905
  Receipt Date: 20130905
  Transmission Date: 20140515
  Serious: No
  Sender: FDA-Public Use
  Company Number: None

PATIENT
  Age: 68 Year
  Sex: Female

DRUGS (3)
  1. NEVANAC [Suspect]
     Indication: CATARACT OPERATION
     Route: 047
     Dates: start: 20130713, end: 20130815
  2. VIAGAMOX [Concomitant]
  3. PREDNISOLONE ACETATE [Concomitant]

REACTIONS (2)
  - Vision blurred [None]
  - Eye disorder [None]
